FAERS Safety Report 5663467-7 (Version None)
Quarter: 2008Q1

REPORT INFORMATION
  Report Type: 
  Country: None (occurrence: None)
  Receive Date: 20080313
  Receipt Date: 20080306
  Transmission Date: 20080703
  Serious: No
  Sender: FDA-Public Use
  Company Number: US-BAXTER-2008BH002016

PATIENT
  Age: 37 Year
  Sex: Female

DRUGS (1)
  1. HEPARIN SODIUM [Suspect]
     Indication: ANTIPHOSPHOLIPID SYNDROME
     Route: 065
     Dates: start: 20080201

REACTIONS (3)
  - COUGH [None]
  - DRUG EXPOSURE DURING PREGNANCY [None]
  - URTICARIA [None]
